FAERS Safety Report 15147069 (Version 2)
Quarter: 2018Q3

REPORT INFORMATION
  Report Type: Spontaneous
  Country: IE (occurrence: IE)
  Receive Date: 20180716
  Receipt Date: 20180801
  Transmission Date: 20181010
  Serious: Yes (Hospitalization, Other)
  Sender: FDA-Public Use
  Company Number: IE-VISTAPHARM, INC.-VER201807-000740

PATIENT
  Age: 22 Year
  Sex: Female

DRUGS (13)
  1. FORMOTEROL [Concomitant]
     Active Substance: FORMOTEROL
     Indication: ASTHMA
     Dosage: UNKNOWN
  2. BUDESONIDE. [Concomitant]
     Active Substance: BUDESONIDE
     Dosage: 200 MCG ONE INHALATION TWICE A DAY
  3. TERBUTALINE SULFATE. [Concomitant]
     Active Substance: TERBUTALINE SULFATE
     Indication: ASTHMA
     Dosage: INHALERS, DOSE UNKNOWN
  4. HYDROCORTISONE. [Concomitant]
     Active Substance: HYDROCORTISONE
     Indication: PRODUCT USE IN UNAPPROVED INDICATION
     Dosage: 200 MG
     Route: 042
  5. ATROVENT [Concomitant]
     Active Substance: IPRATROPIUM BROMIDE
     Indication: PRODUCT USE IN UNAPPROVED INDICATION
     Dosage: VIA NEBULISER
  6. MONTELUKAST [Concomitant]
     Active Substance: MONTELUKAST SODIUM
     Dosage: 10 MG ONCE A DAY
     Route: 048
  7. AMINOPHYLLINE. [Concomitant]
     Active Substance: AMINOPHYLLINE
     Indication: PRODUCT USE IN UNAPPROVED INDICATION
     Dosage: INFUSION
  8. ALBUTEROL. [Suspect]
     Active Substance: ALBUTEROL
     Indication: ASTHMA
     Dosage: 15 MG TOTAL SALBUTAMOL OVER 24 HRS VIA NEBULISER.
  9. ALBUTEROL. [Suspect]
     Active Substance: ALBUTEROL
     Dosage: TWO INHALATIONS 100 ?G 4 TO 6 HOURLY AS NEEDED
  10. BUDESONIDE. [Concomitant]
     Active Substance: BUDESONIDE
     Indication: ASTHMA
     Dosage: UNKNOWN
  11. FORMOTEROL [Concomitant]
     Active Substance: FORMOTEROL
     Dosage: 6 MCG ONE INHALATION TWICE A DAY
  12. MONTELUKAST [Concomitant]
     Active Substance: MONTELUKAST SODIUM
     Indication: PRODUCT USE IN UNAPPROVED INDICATION
     Dosage: UNKNOWN
  13. MAGNESIUM SULFATE. [Concomitant]
     Active Substance: MAGNESIUM SULFATE
     Indication: PRODUCT USE IN UNAPPROVED INDICATION
     Route: 042

REACTIONS (1)
  - Lactic acidosis [Unknown]
